FAERS Safety Report 18580580 (Version 1)
Quarter: 2020Q4

REPORT INFORMATION
  Report Type: Spontaneous
  Country: GR (occurrence: GR)
  Receive Date: 20201204
  Receipt Date: 20201204
  Transmission Date: 20210114
  Serious: Yes (Hospitalization, Other)
  Sender: FDA-Public Use
  Company Number: GR-AMGEN-GRCSP2020196469

PATIENT
  Age: 72 Year
  Sex: Female

DRUGS (3)
  1. RIBOCICLIB. [Concomitant]
     Active Substance: RIBOCICLIB
     Dosage: UNK
     Dates: start: 201806
  2. LETROZOL [Concomitant]
     Active Substance: LETROZOLE
     Dosage: UNK
     Dates: start: 201806
  3. XGEVA [Suspect]
     Active Substance: DENOSUMAB
     Indication: METASTASES TO BONE
     Dosage: UNK
     Route: 065
     Dates: start: 201806

REACTIONS (4)
  - Dysarthria [Unknown]
  - Fall [Unknown]
  - Discomfort [Unknown]
  - Metastases to central nervous system [Unknown]
